FAERS Safety Report 17240528 (Version 7)
Quarter: 2022Q1

REPORT INFORMATION
  Report Type: Spontaneous
  Country: CZ (occurrence: CZ)
  Receive Date: 20200107
  Receipt Date: 20220210
  Transmission Date: 20220423
  Serious: Yes (Hospitalization, Other)
  Sender: FDA-Public Use
  Company Number: CZ-ACCORD-167362

PATIENT
  Age: 88 Year
  Sex: Male
  Weight: 73 kg

DRUGS (21)
  1. BISOPROLOL [Suspect]
     Active Substance: BISOPROLOL
     Indication: Product used for unknown indication
     Dosage: 2.5 MILLIGRAM, ONCE A DAY
     Route: 065
  2. BISOPROLOL [Suspect]
     Active Substance: BISOPROLOL
     Dosage: 2.5 MILLIGRAM, FOUR TIMES/DAY
     Route: 065
  3. BISOPROLOL [Suspect]
     Active Substance: BISOPROLOL
     Dosage: 25 MILLIGRAM, ONCE A DAY
     Route: 065
  4. FUROSEMIDE [Suspect]
     Active Substance: FUROSEMIDE
     Indication: Product used for unknown indication
     Dosage: 125 MILLIGRAM, ONCE A DAY
     Route: 065
  5. HYDROCHLOROTHIAZIDE [Suspect]
     Active Substance: HYDROCHLOROTHIAZIDE
     Indication: Product used for unknown indication
     Dosage: 25 MILLIGRAM, ONCE A DAY (0.5-0-0)
     Route: 065
  6. HYDROCHLOROTHIAZIDE [Suspect]
     Active Substance: HYDROCHLOROTHIAZIDE
     Dosage: 12.5 MILLIGRAM, ONCE A DAY
     Route: 065
  7. CIPROFLOXACIN [Interacting]
     Active Substance: CIPROFLOXACIN
     Indication: Product used for unknown indication
     Dosage: 500 MILLIGRAM, ONCE A DAY (EVERY 24 HOURS)
     Route: 065
  8. PROMETHAZINE [Suspect]
     Active Substance: PROMETHAZINE HYDROCHLORIDE
     Indication: Product used for unknown indication
     Dosage: 25 MILLIGRAM, ONCE A DAY
     Route: 065
  9. CLOPIDOGREL [Suspect]
     Active Substance: CLOPIDOGREL BISULFATE
     Indication: Product used for unknown indication
     Dosage: 75 MILLIGRAM, ONCE A DAY (1-0-0 )
     Route: 065
  10. THEOPHYLLINE [Interacting]
     Active Substance: THEOPHYLLINE
     Indication: Product used for unknown indication
     Dosage: 200 MILLIGRAM, TWO TIMES A DAY (SUSTAINED RELEASE)
     Route: 065
  11. THEOPHYLLINE [Interacting]
     Active Substance: THEOPHYLLINE
     Dosage: 400 MILLIGRAM, ONCE A DAY(SR 200 MG/DAY (1-0-1)/ SUSTAINED RELEASE )
     Route: 065
  12. TIAPRIDE [Suspect]
     Active Substance: TIAPRIDE
     Indication: Product used for unknown indication
     Dosage: 100 MILLIGRAM, FOUR TIMES/DAY (2-2-2-2)
     Route: 065
  13. TIAPRIDE [Suspect]
     Active Substance: TIAPRIDE
     Dosage: 200 MILLIGRAM, TWO TIMES A DAY(2 DF 100 MG 4 TIMES A DAY )
     Route: 065
  14. ALLOPURINOL [Interacting]
     Active Substance: ALLOPURINOL
     Indication: Product used for unknown indication
     Dosage: 300 MILLIGRAM, ONCE A DAY
     Route: 065
  15. AMIODARONE [Concomitant]
     Active Substance: AMIODARONE
     Indication: Atrial fibrillation
     Dosage: UNK
     Route: 065
  16. CLARITHROMYCIN [Concomitant]
     Active Substance: CLARITHROMYCIN
     Indication: Product used for unknown indication
     Dosage: 500 MILLIGRAM, ONCE A DAY (0-0-1)
     Route: 065
  17. LEVOTHYROXINE [Concomitant]
     Active Substance: LEVOTHYROXINE
     Indication: Product used for unknown indication
     Dosage: 25 MICROGRAM, ONCE A DAY ((3X WEEKLY)
     Route: 065
  18. LEVOTHYROXINE [Concomitant]
     Active Substance: LEVOTHYROXINE
     Dosage: 25 MICROGRAM, EVERY WEEK
     Route: 065
  19. POTASSIUM CHLORIDE [Concomitant]
     Active Substance: POTASSIUM CHLORIDE
     Indication: Product used for unknown indication
     Dosage: 1 GRAM, ONCE A DAY(0-1-0)
     Route: 065
  20. SACCHAROMYCES CEREVISIAE [Concomitant]
     Active Substance: SACCHAROMYCES CEREVISIAE
     Indication: Product used for unknown indication
     Dosage: 250 MILLIGRAM, TWO TIMES A DAY
     Route: 065
  21. SACCHAROMYCES CEREVISIAE [Concomitant]
     Active Substance: SACCHAROMYCES CEREVISIAE
     Dosage: 250 MILLIGRAM, ONCE A DAY
     Route: 065

REACTIONS (11)
  - Fall [Unknown]
  - Head injury [Unknown]
  - Intentional overdose [Unknown]
  - Balance disorder [Unknown]
  - Overdose [Unknown]
  - Contraindicated product administered [Unknown]
  - Drug interaction [Unknown]
  - Labelled drug-drug interaction medication error [Unknown]
  - Medication error [Unknown]
  - Drug level increased [Unknown]
  - Restlessness [Unknown]
